FAERS Safety Report 5399322-X (Version None)
Quarter: 2007Q3

REPORT INFORMATION
  Report Type: 
  Country: None (occurrence: None)
  Receive Date: 20070727
  Receipt Date: 20070723
  Transmission Date: 20080115
  Serious: Yes (Hospitalization)
  Sender: FDA-Public Use
  Company Number: GR-AVENTIS-200716752GDDC

PATIENT
  Age: 2 Year

DRUGS (1)
  1. LEFLUNOMIDE [Suspect]
     Route: 048
     Dates: start: 20070722, end: 20070722

REACTIONS (3)
  - ACCIDENTAL EXPOSURE [None]
  - ACCIDENTAL OVERDOSE [None]
  - TRANSAMINASES INCREASED [None]
